FAERS Safety Report 22218612 (Version 1)
Quarter: 2023Q2

REPORT INFORMATION
  Report Type: Spontaneous
  Country: ES (occurrence: ES)
  Receive Date: 20230417
  Receipt Date: 20230417
  Transmission Date: 20230721
  Serious: Yes (Hospitalization)
  Sender: FDA-Public Use
  Company Number: None

PATIENT
  Age: 77 Year
  Sex: Female

DRUGS (4)
  1. CLONAZEPAM [Interacting]
     Active Substance: CLONAZEPAM
     Dosage: DAILY DOSE: 0.5 MILLIGRAM
     Route: 048
     Dates: start: 20200812, end: 20230323
  2. QUETIAPINE [Interacting]
     Active Substance: QUETIAPINE
     Dosage: DAILY DOSE: 25 MILLIGRAM
     Route: 048
     Dates: start: 20160211, end: 20230323
  3. FENTANYL [Interacting]
     Active Substance: FENTANYL
     Indication: Osteoporosis
     Dosage: 1 PATCH EVERY 72 HOURS
     Route: 062
     Dates: start: 20180523, end: 20230318
  4. FENTANYL [Interacting]
     Active Substance: FENTANYL
     Indication: Osteoporosis
     Dosage: FREQUNCY: 1 HOUR
     Route: 062
     Dates: start: 20230319, end: 20230323

REACTIONS (4)
  - Respiratory failure [Not Recovered/Not Resolved]
  - Depressed level of consciousness [Not Recovered/Not Resolved]
  - Somnolence [Not Recovered/Not Resolved]
  - Toxicity to various agents [Unknown]

NARRATIVE: CASE EVENT DATE: 20230301
